FAERS Safety Report 19076919 (Version 1)
Quarter: 2021Q1

REPORT INFORMATION
  Report Type: Spontaneous
  Country: US (occurrence: US)
  Receive Date: 20210331
  Receipt Date: 20210331
  Transmission Date: 20210420
  Serious: Yes (Other)
  Sender: FDA-Public Use
  Company Number: US-FARMAPROD-202102-0169

PATIENT
  Age: 82 Year
  Sex: Male

DRUGS (20)
  1. TROSPIUM CHLORIDE. [Concomitant]
     Active Substance: TROSPIUM CHLORIDE
  2. PROVENTIL [Concomitant]
     Active Substance: ALBUTEROL
  3. FLUOXETINE HCL [Concomitant]
     Active Substance: FLUOXETINE HYDROCHLORIDE
  4. CENTRUM SILVER .4 [Concomitant]
     Dosage: 300?250 MG
  5. DULERA [Concomitant]
     Active Substance: FORMOTEROL FUMARATE DIHYDRATE\MOMETASONE FUROATE
     Dosage: 100?5 MCG
  6. HYDROCHLOROTHIAZIDE. [Concomitant]
     Active Substance: HYDROCHLOROTHIAZIDE
  7. ACICLOVIR [Concomitant]
     Active Substance: ACYCLOVIR
  8. INVELTYS [Concomitant]
     Active Substance: LOTEPREDNOL ETABONATE
     Dosage: DROPS SUSPENSION
  9. MODAFINIL. [Concomitant]
     Active Substance: MODAFINIL
  10. FOSINOPRIL SODIUM. [Concomitant]
     Active Substance: FOSINOPRIL SODIUM
  11. OXERVATE [Suspect]
     Active Substance: CENEGERMIN-BKBJ
     Indication: NEUROTROPHIC KERATOPATHY
     Route: 047
     Dates: start: 20210127, end: 20210212
  12. FISH OIL [Concomitant]
     Active Substance: FISH OIL
     Dosage: 100?150 MG
  13. MULTIVITAMINE [Concomitant]
     Active Substance: VITAMINS
  14. TORSEMIDE. [Concomitant]
     Active Substance: TORSEMIDE
  15. METFORMIN HCL [Concomitant]
     Active Substance: METFORMIN HYDROCHLORIDE
  16. MELOXICAM. [Concomitant]
     Active Substance: MELOXICAM
  17. ZIRGAN [Concomitant]
     Active Substance: GANCICLOVIR
  18. MEMANTINE HCL [Concomitant]
     Active Substance: MEMANTINE
  19. TIMOLOL MALEATE. [Concomitant]
     Active Substance: TIMOLOL MALEATE
  20. IPRATROPIUM BROMIDE. [Concomitant]
     Active Substance: IPRATROPIUM BROMIDE

REACTIONS (5)
  - Eye irritation [Not Recovered/Not Resolved]
  - Corneal transplant [Unknown]
  - Ocular hyperaemia [Not Recovered/Not Resolved]
  - Eye pain [Unknown]
  - Product administration error [Unknown]

NARRATIVE: CASE EVENT DATE: 20210129
